FAERS Safety Report 4284822-6 (Version None)
Quarter: 2004Q1

REPORT INFORMATION
  Report Type: 
  Country: None (occurrence: None)
  Receive Date: 20040203
  Receipt Date: 20040203
  Transmission Date: 20041129
  Serious: Yes (Hospitalization, Other)
  Sender: FDA-Public Use
  Company Number: None

PATIENT
  Age: 69 Year
  Sex: Female

DRUGS (4)
  1. TOPRAL (MFR: ASTRAZENECA) [Suspect]
  2. MULTI-VITAMIN [Concomitant]
  3. NAPROSYN [Concomitant]
  4. ZOLOFT [Concomitant]

REACTIONS (1)
  - BRADYCARDIA [None]
